FAERS Safety Report 5535775-1 (Version None)
Quarter: 2007Q4

REPORT INFORMATION
  Report Type: 
  Country: None (occurrence: None)
  Receive Date: 20071203
  Receipt Date: 20071203
  Transmission Date: 20080405
  Serious: Yes (Hospitalization)
  Sender: FDA-Public Use
  Company Number: None

PATIENT
  Sex: Female
  Weight: 75 kg

DRUGS (2)
  1. MIFEPRISTONE [Suspect]
     Dosage: 1800 MG
  2. COUMADIN [Concomitant]

REACTIONS (21)
  - ACIDOSIS [None]
  - ANAEMIA [None]
  - ASPARTATE AMINOTRANSFERASE INCREASED [None]
  - BACTERIAL INFECTION [None]
  - BLOOD BILIRUBIN INCREASED [None]
  - BLOOD CULTURE POSITIVE [None]
  - COLITIS ISCHAEMIC [None]
  - COLON CANCER METASTATIC [None]
  - CULTURE URINE POSITIVE [None]
  - DEPRESSED LEVEL OF CONSCIOUSNESS [None]
  - GASTROINTESTINAL CARCINOMA [None]
  - HIATUS HERNIA [None]
  - HYPERTENSION [None]
  - INTERNATIONAL NORMALISED RATIO INCREASED [None]
  - KLEBSIELLA INFECTION [None]
  - LARGE INTESTINAL ULCER [None]
  - LARGE INTESTINE PERFORATION [None]
  - PROTHROMBIN TIME PROLONGED [None]
  - RECTAL HAEMORRHAGE [None]
  - RENAL FAILURE ACUTE [None]
  - SEPTIC SHOCK [None]
